FAERS Safety Report 5498694-5 (Version None)
Quarter: 2007Q4

REPORT INFORMATION
  Report Type: 
  Country: None (occurrence: None)
  Receive Date: 20071026
  Receipt Date: 20071022
  Transmission Date: 20080405
  Serious: Yes (Death)
  Sender: FDA-Public Use
  Company Number: US-NOVOPROD-268726

PATIENT

DRUGS (6)
  1. NOVOSEVEN [Suspect]
     Indication: POSTPARTUM HAEMORRHAGE
     Dosage: 4.8 MG, SINGLE
     Route: 042
  2. NOVOSEVEN [Suspect]
     Dosage: 4.8 MG, SINGLE
     Route: 042
  3. RED BLOOD CELLS [Concomitant]
     Dosage: 77 UNITS
     Route: 042
  4. FRESH FROZEN PLASMA [Concomitant]
     Dosage: 37 UNITS
     Route: 042
  5. CRYOPRECIPITATES [Concomitant]
     Dosage: 9 POOLS
     Route: 042
  6. PLATELETS [Concomitant]
     Dosage: UNK, UNK
     Route: 042

REACTIONS (6)
  - ACIDOSIS [None]
  - CARDIAC ARREST [None]
  - DRUG INEFFECTIVE [None]
  - HYPOTHERMIA [None]
  - SHOCK [None]
  - VENTRICULAR FIBRILLATION [None]
